FAERS Safety Report 11549346 (Version 1)
Quarter: 2015Q3

REPORT INFORMATION
  Report Type: Spontaneous
  Country: US (occurrence: US)
  Receive Date: 20150924
  Receipt Date: 20150924
  Transmission Date: 20151125
  Serious: No
  Sender: FDA-Public Use
  Company Number: US-INCYTE CORPORATION-2015IN001920

PATIENT
  Age: 70 Year
  Sex: Female

DRUGS (7)
  1. JAKAFI [Suspect]
     Active Substance: RUXOLITINIB
     Indication: MYELOFIBROSIS
     Dosage: 5 MG, QD
     Route: 048
     Dates: start: 20150409
  2. JAKAFI [Suspect]
     Active Substance: RUXOLITINIB
     Dosage: 5 MG, QD
     Route: 048
     Dates: start: 2015, end: 201505
  3. CLARITIN [Concomitant]
     Active Substance: LORATADINE
     Dosage: UNK
  4. JAKAFI [Suspect]
     Active Substance: RUXOLITINIB
     Dosage: 5 MG, BID
     Route: 048
     Dates: start: 20150413, end: 20150420
  5. DIOVAN [Concomitant]
     Active Substance: VALSARTAN
     Dosage: UNK
  6. TYLENOL [Concomitant]
     Active Substance: ACETAMINOPHEN
     Dosage: UNK
  7. ASPIRIN. [Concomitant]
     Active Substance: ASPIRIN
     Dosage: UNK

REACTIONS (10)
  - Skin discolouration [Unknown]
  - Pain [Recovering/Resolving]
  - Headache [Recovering/Resolving]
  - Dyspnoea [Recovering/Resolving]
  - Hypoaesthesia [Recovering/Resolving]
  - White blood cell count increased [Unknown]
  - Dizziness [Recovering/Resolving]
  - Chest pain [Recovering/Resolving]
  - Cardiac disorder [Unknown]
  - Lung disorder [Unknown]

NARRATIVE: CASE EVENT DATE: 20150417
